FAERS Safety Report 4801001-1 (Version None)
Quarter: 2005Q4

REPORT INFORMATION
  Report Type: 
  Country: None (occurrence: None)
  Receive Date: 20051012
  Receipt Date: 20050930
  Transmission Date: 20060501
  Serious: Yes (Other)
  Sender: FDA-Public Use
  Company Number: 2005137069

PATIENT
  Age: 72 Year
  Sex: Male

DRUGS (16)
  1. GABAPENTIN [Suspect]
     Indication: NEURALGIA
     Dosage: 2100 MG (700 MG, 3 IN 1 D), ORAL
     Route: 048
  2. OXYCONTIN [Suspect]
     Indication: PAIN
     Dosage: 80 MG (40 MG, 2 IN 1 D), ORAL
     Route: 048
  3. OXYCODONE HCL [Suspect]
     Indication: PAIN
     Dosage: ORAL
     Route: 048
  4. DIAZEPAM [Concomitant]
  5. ATENOLOL [Concomitant]
  6. PERINDOPRIL (PERINDOPRIL) [Concomitant]
  7. ISOSORBIDE (ISOSORBIDE) [Concomitant]
  8. ATORVASTATIN CALCIUM [Concomitant]
  9. AMITRIPTYLINE HCL [Concomitant]
  10. FUROSEMIDE [Concomitant]
  11. OMEPRAZOLE [Concomitant]
  12. ACETAMINOPHEN [Concomitant]
  13. ASPIRIN [Concomitant]
  14. CODEINE (CODEINE) [Concomitant]
  15. NICORANDIL (NICORANDIL) [Concomitant]
  16. SENNA (SENNA) [Concomitant]

REACTIONS (5)
  - DISEASE PROGRESSION [None]
  - MOBILITY DECREASED [None]
  - MUSCLE RIGIDITY [None]
  - OEDEMA [None]
  - OEDEMA PERIPHERAL [None]
